FAERS Safety Report 26187752 (Version 1)
Quarter: 2025Q4

REPORT INFORMATION
  Report Type: Report from Study
  Country: AR (occurrence: AR)
  Receive Date: 20251222
  Receipt Date: 20251222
  Transmission Date: 20260117
  Serious: Yes (Hospitalization, Other)
  Sender: AMGEN
  Company Number: AR-AMGEN-ARGSL2025051366

PATIENT
  Age: 49 Year
  Sex: Male

DRUGS (2)
  1. VECTIBIX [Suspect]
     Active Substance: PANITUMUMAB
     Indication: Colorectal cancer
     Dosage: UNK,15 DAYS
     Route: 065
     Dates: start: 20250224
  2. VECTIBIX [Suspect]
     Active Substance: PANITUMUMAB
     Dosage: UNK UNK, Q3WK
     Route: 065
     Dates: start: 2025

REACTIONS (6)
  - Urinary tract infection [Unknown]
  - Intestinal obstruction [Unknown]
  - Renal failure [Not Recovered/Not Resolved]
  - Rash [Unknown]
  - Pruritus [Unknown]
  - Off label use [Unknown]

NARRATIVE: CASE EVENT DATE: 20250101
